FAERS Safety Report 7064458-4 (Version None)
Quarter: 2010Q4

REPORT INFORMATION
  Report Type: 
  Country: None (occurrence: None)
  Receive Date: 20101027
  Receipt Date: 20101015
  Transmission Date: 20110411
  Serious: Yes (Hospitalization, Other)
  Sender: FDA-Public Use
  Company Number: FR-PFIZER INC-2010127351

PATIENT
  Age: 59 Year
  Sex: Male

DRUGS (13)
  1. SALAZOPYRINE [Suspect]
     Indication: CROHN'S DISEASE
     Dosage: UNK
     Dates: start: 19890101, end: 20000101
  2. SALAZOPYRINE [Suspect]
     Dosage: UNK
     Dates: start: 20030901, end: 20070101
  3. PENTASA [Concomitant]
     Dosage: UNK
     Dates: start: 20000101
  4. ROCEPHIN [Concomitant]
     Dosage: UNK
  5. FLAGYL [Concomitant]
     Dosage: UNK
  6. LOVENOX [Concomitant]
     Dosage: UNK
  7. SOLUPRED [Concomitant]
     Dosage: UNK
  8. IMUREL [Concomitant]
     Dosage: UNK
  9. ENTOCORT EC [Concomitant]
     Dosage: UNK
  10. FIV-ASA [Concomitant]
     Dosage: UNK
  11. CORTANCYL [Concomitant]
     Dosage: UNK
  12. QUESTRAN [Concomitant]
     Dosage: UNK
  13. VIOXX [Concomitant]
     Dosage: UNK

REACTIONS (10)
  - ESCHERICHIA INFECTION [None]
  - HYPEROXALURIA [None]
  - NAUSEA [None]
  - NEPHROLITHIASIS [None]
  - NEPHROPATHY [None]
  - PSOAS ABSCESS [None]
  - RENAL ATROPHY [None]
  - RENAL IMPAIRMENT [None]
  - URINARY TRACT INFECTION [None]
  - VOMITING [None]
